FAERS Safety Report 5495606-5 (Version None)
Quarter: 2007Q4

REPORT INFORMATION
  Report Type: 
  Country: None (occurrence: None)
  Receive Date: 20071018
  Receipt Date: 20070509
  Transmission Date: 20080405
  Serious: Yes (Other)
  Sender: FDA-Public Use
  Company Number: 2006030618

PATIENT
  Age: 46 Year
  Sex: Male

DRUGS (10)
  1. GABAPENTIN [Suspect]
     Indication: NERVE INJURY
  2. FUROSEMIDE [Concomitant]
  3. HYDROXYZINE PAMOATE [Concomitant]
  4. HYDROCODONE BITARTRATE + ACETAMINOPHEN [Concomitant]
  5. IBUPROFEN [Concomitant]
  6. PANLOR DC                (CAFFEINE, DIHYDROCODEINE BITARTRATE, PARACET [Concomitant]
  7. LEXAPRO [Concomitant]
  8. LORAZEPAM [Concomitant]
  9. METHOCARBAMOL [Concomitant]
  10. ACETAMINOPHEN AND OXYCODONE HCL [Concomitant]

REACTIONS (4)
  - ANXIETY [None]
  - DEPRESSION [None]
  - DRUG INEFFECTIVE [None]
  - SUICIDE ATTEMPT [None]
